FAERS Safety Report 7693330-1 (Version None)
Quarter: 2011Q3

REPORT INFORMATION
  Report Type: 
  Country: None (occurrence: None)
  Receive Date: 20110819
  Receipt Date: 20110817
  Transmission Date: 20111222
  Serious: Yes (Other)
  Sender: FDA-Public Use
  Company Number: PHHY2011CA74003

PATIENT
  Sex: Male

DRUGS (1)
  1. LOPRESSOR [Suspect]

REACTIONS (1)
  - AGGRESSION [None]
